FAERS Safety Report 18690552 (Version 1)
Quarter: 2021Q1

REPORT INFORMATION
  Report Type: Report from Study
  Country: IE (occurrence: IE)
  Receive Date: 20210101
  Receipt Date: 20210101
  Transmission Date: 20210419
  Serious: Yes (Other)
  Sender: FDA-Public Use
  Company Number: IE-BIOVITRUM-2020IE8074

PATIENT
  Age: 2 Month
  Sex: Male

DRUGS (3)
  1. SYNAGIS [Suspect]
     Active Substance: PALIVIZUMAB
     Route: 030
     Dates: start: 20201218
  2. SYNAGIS [Suspect]
     Active Substance: PALIVIZUMAB
     Indication: HEART DISEASE CONGENITAL
     Route: 030
     Dates: start: 20201020, end: 20201020
  3. SYNAGIS [Suspect]
     Active Substance: PALIVIZUMAB
     Route: 030
     Dates: start: 20201119, end: 20201119

REACTIONS (11)
  - Respiratory distress [Recovered/Resolved]
  - Dyspnoea [Recovered/Resolved]
  - Gastrooesophageal reflux disease [Recovered/Resolved]
  - Increased viscosity of upper respiratory secretion [Recovered/Resolved]
  - Aspiration [Recovered/Resolved]
  - Breath holding [Recovered/Resolved]
  - Apnoea [Recovered/Resolved]
  - Tachypnoea [Recovered/Resolved]
  - Rhinorrhoea [Recovered/Resolved]
  - Tachycardia [Recovered/Resolved]
  - Pigmentation disorder [Recovered/Resolved]

NARRATIVE: CASE EVENT DATE: 2020
